FAERS Safety Report 7378391-1 (Version None)
Quarter: 2011Q1

REPORT INFORMATION
  Report Type: 
  Country: None (occurrence: None)
  Receive Date: 20110328
  Receipt Date: 20110322
  Transmission Date: 20110831
  Serious: Yes (Hospitalization)
  Sender: FDA-Public Use
  Company Number: JP-ABBOTT-11P-087-0710062-00

PATIENT
  Sex: Male

DRUGS (8)
  1. POLYCARBOPHIL CALCIUM [Concomitant]
     Indication: CROHN'S DISEASE
     Dates: start: 20090829
  2. MESALAMINE [Concomitant]
     Indication: CROHN'S DISEASE
     Dates: start: 20090829
  3. HUMIRA [Suspect]
     Indication: CROHN'S DISEASE
     Route: 058
     Dates: start: 20110108
  4. CLOSTRIDIUM BUTYRICUM [Concomitant]
     Indication: CROHN'S DISEASE
     Dates: start: 20090829
  5. HUMIRA [Suspect]
     Dates: start: 20110122
  6. RAMOSETRON HYDROCHLORIDE [Concomitant]
     Indication: CROHN'S DISEASE
     Dates: start: 20090829
  7. ETHYL LOFLAZEPATE [Concomitant]
     Indication: CROHN'S DISEASE
     Dates: start: 20090829
  8. HUMIRA [Suspect]
     Dates: start: 20110205, end: 20110205

REACTIONS (2)
  - PERITONITIS [None]
  - CROHN'S DISEASE [None]
